FAERS Safety Report 6638647-4 (Version None)
Quarter: 2010Q1

REPORT INFORMATION
  Report Type: 
  Country: None (occurrence: None)
  Receive Date: 20100316
  Receipt Date: 20100316
  Transmission Date: 20100710
  Serious: Yes (Hospitalization)
  Sender: FDA-Public Use
  Company Number: None

PATIENT
  Sex: Female
  Weight: 56 kg

DRUGS (2)
  1. CARBOPLATIN [Suspect]
     Dosage: 1644 MG
     Dates: end: 20100205
  2. TAXOL [Suspect]
     Dosage: 780 MG
     Dates: end: 20100205

REACTIONS (3)
  - RETINAL DETACHMENT [None]
  - VISION BLURRED [None]
  - VITREOUS HAEMORRHAGE [None]
